FAERS Safety Report 23157922 (Version 1)
Quarter: 2023Q4

REPORT INFORMATION
  Report Type: Spontaneous
  Country: IE (occurrence: None)
  Receive Date: 20231108
  Receipt Date: 20231108
  Transmission Date: 20240110
  Serious: Yes (Other)
  Sender: FDA-Public Use
  Company Number: 2023A247101

PATIENT
  Sex: Female

DRUGS (8)
  1. FULVESTRANT [Suspect]
     Active Substance: FULVESTRANT
     Indication: Breast cancer metastatic
     Dosage: UNK
     Dates: start: 202008
  2. FULVESTRANT [Suspect]
     Active Substance: FULVESTRANT
     Indication: Breast cancer metastatic
     Dosage: UNK
     Dates: start: 202008
  3. GOSERELIN [Suspect]
     Active Substance: GOSERELIN
     Indication: Breast cancer metastatic
     Dosage: UNK
     Dates: start: 202105
  4. PALBOCICLIB [Suspect]
     Active Substance: PALBOCICLIB
     Indication: Breast cancer metastatic
     Dosage: UNK
     Dates: start: 202012, end: 202104
  5. RIBOCICLIB [Suspect]
     Active Substance: RIBOCICLIB
     Indication: Breast cancer metastatic
     Dosage: UNK
     Dates: start: 202008
  6. XGEVA [Suspect]
     Active Substance: DENOSUMAB
     Indication: Breast cancer metastatic
     Dosage: UNK (MONTHLY)
     Dates: start: 202008
  7. DENOSUMAB [Suspect]
     Active Substance: DENOSUMAB
     Indication: Breast cancer metastatic
     Dosage: UNK (MONTHLY)
     Dates: start: 202105
  8. EXEMESTANE [Suspect]
     Active Substance: EXEMESTANE
     Indication: Breast cancer metastatic
     Dosage: UNK (MONTHLY)
     Dates: start: 202105

REACTIONS (5)
  - Metastases to lung [Unknown]
  - Toxicity to various agents [Unknown]
  - Tumour marker increased [Unknown]
  - Liver function test abnormal [Unknown]
  - Rash [Unknown]

NARRATIVE: CASE EVENT DATE: 20210401
